FAERS Safety Report 8457325-2 (Version None)
Quarter: 2012Q2

REPORT INFORMATION
  Report Type: 
  Country: None (occurrence: None)
  Receive Date: 20120621
  Receipt Date: 20120618
  Transmission Date: 20120825
  Serious: Yes (Death, Other)
  Sender: FDA-Public Use
  Company Number: VE-PFIZER INC-2012128059

PATIENT
  Age: 87 Year
  Sex: Female

DRUGS (1)
  1. ZOLOFT [Suspect]
     Dosage: 20 MG, UNK
     Dates: start: 20110101

REACTIONS (2)
  - NEOPLASM MALIGNANT [None]
  - DECREASED APPETITE [None]
